FAERS Safety Report 20772880 (Version 2)
Quarter: 2022Q2

REPORT INFORMATION
  Report Type: Spontaneous
  Country: ES (occurrence: ES)
  Receive Date: 20220502
  Receipt Date: 20220523
  Transmission Date: 20220721
  Serious: Yes (Hospitalization, Other)
  Sender: FDA-Public Use
  Company Number: ES-CINFAGATEW-2022000895

PATIENT
  Sex: Male

DRUGS (9)
  1. ARIPIPRAZOLE [Suspect]
     Active Substance: ARIPIPRAZOLE
     Indication: Product used for unknown indication
     Dosage: 400 MILLIGRAM
     Route: 065
     Dates: start: 201712
  2. ARIPIPRAZOLE [Suspect]
     Active Substance: ARIPIPRAZOLE
     Dosage: 10 MILLIGRAM, ONCE A DAY
     Route: 065
     Dates: start: 201702, end: 201705
  3. FLUOXETINE [Interacting]
     Active Substance: FLUOXETINE HYDROCHLORIDE
     Indication: Behaviour disorder
     Dosage: 20 MILLIGRAM, ONCE A DAY
     Route: 065
     Dates: start: 20160425, end: 20160613
  4. OLANZAPINE [Suspect]
     Active Substance: OLANZAPINE
     Indication: Product used for unknown indication
     Dosage: 20 MILLIGRAM, ONCE A DAY
     Route: 065
     Dates: start: 201610, end: 201702
  5. OLANZAPINE [Suspect]
     Active Substance: OLANZAPINE
     Dosage: 20 MILLIGRAM, ONCE A DAY
     Route: 065
     Dates: start: 201705, end: 201712
  6. QUETIAPINE [Interacting]
     Active Substance: QUETIAPINE
     Indication: Behaviour disorder
     Dosage: 100 MILLIGRAM, ONCE A DAY
     Route: 065
     Dates: start: 20160425, end: 20160613
  7. TRAZODONE [Suspect]
     Active Substance: TRAZODONE HYDROCHLORIDE
     Indication: Schizoaffective disorder
     Dosage: 200 MILLIGRAM, ONCE A DAY
     Route: 065
     Dates: start: 20160613, end: 20161004
  8. TRAZODONE [Suspect]
     Active Substance: TRAZODONE HYDROCHLORIDE
     Dosage: 200 MILLIGRAM, ONCE A DAY
     Route: 065
     Dates: start: 1994, end: 20160118
  9. LITHIUM [Concomitant]
     Active Substance: LITHIUM
     Indication: Product used for unknown indication
     Dosage: 600 MILLIGRAM, ONCE A DAY
     Route: 065
     Dates: start: 201702, end: 201705

REACTIONS (15)
  - Extrapyramidal disorder [Recovered/Resolved]
  - Mutism [Unknown]
  - Mixed delusion [Unknown]
  - Depressed mood [Unknown]
  - Agitation [Recovered/Resolved]
  - Hyperprolactinaemia [Recovered/Resolved]
  - Melaena [Recovered/Resolved]
  - Catatonia [Unknown]
  - Deep vein thrombosis [Recovered/Resolved]
  - Hypomania [Recovered/Resolved]
  - Neurological decompensation [Recovered/Resolved]
  - Sedation complication [Recovered/Resolved]
  - Insomnia [Recovered/Resolved]
  - Drug interaction [Unknown]
  - Drug ineffective [Recovered/Resolved]

NARRATIVE: CASE EVENT DATE: 20160101
